FAERS Safety Report 5594888-9 (Version None)
Quarter: 2007Q4

REPORT INFORMATION
  Report Type: 
  Country: None (occurrence: None)
  Receive Date: 20071218
  Receipt Date: 20070410
  Transmission Date: 20080405
  Serious: Yes (Hospitalization)
  Sender: FDA-Public Use
  Company Number: 2007028877

PATIENT
  Age: 69 Year
  Sex: Female
  Weight: 58.5 kg

DRUGS (1)
  1. BEXTRA [Suspect]
     Indication: ARTHRITIS
     Dosage: 20 MG (20 MG,1 IN 1 D)
     Dates: start: 20031016, end: 20041127

REACTIONS (2)
  - ANXIETY [None]
  - EMBOLISM [None]
